FAERS Safety Report 5095383-6 (Version None)
Quarter: 2006Q3

REPORT INFORMATION
  Report Type: 
  Country: None (occurrence: None)
  Receive Date: 20060901
  Receipt Date: 20060628
  Transmission Date: 20061208
  Serious: Yes (Other)
  Sender: FDA-Public Use
  Company Number: US-ROCHE-453671

PATIENT
  Age: 67 Year
  Sex: Male

DRUGS (7)
  1. PEGASYS [Suspect]
     Dosage: STRENGTH + FORMULATION REPORTED AS 180 MCG/0.5 ML.
     Route: 058
     Dates: start: 20060129, end: 20060716
  2. RIBAVIRIN [Suspect]
     Route: 048
     Dates: start: 20060129, end: 20060716
  3. TOPROL-XL [Concomitant]
  4. NORVASC [Concomitant]
  5. IMDUR [Concomitant]
  6. ZETIA [Concomitant]
  7. ZOLOFT [Concomitant]

REACTIONS (4)
  - CONDITION AGGRAVATED [None]
  - EMPHYSEMA [None]
  - ENDODONTIC PROCEDURE [None]
  - FATIGUE [None]
